FAERS Safety Report 21961583 (Version 2)
Quarter: 2023Q1

REPORT INFORMATION
  Report Type: Spontaneous
  Country: US (occurrence: US)
  Receive Date: 20230207
  Receipt Date: 20230216
  Transmission Date: 20230418
  Serious: Yes (Death, Life-Threatening, Hospitalization, Other)
  Sender: FDA-Public Use
  Company Number: US-drreddys-SPO/USA/23/0160684

PATIENT
  Age: 69 Year
  Sex: Female

DRUGS (2)
  1. DEXAMETHASONE [Suspect]
     Active Substance: DEXAMETHASONE
     Indication: COVID-19
  2. METHOTREXATE [Concomitant]
     Active Substance: METHOTREXATE
     Indication: Rheumatoid arthritis

REACTIONS (6)
  - Histoplasmosis disseminated [Fatal]
  - Respiratory failure [Fatal]
  - Encephalopathy [Fatal]
  - Renal failure [Fatal]
  - Erythema nodosum [Fatal]
  - Product use in unapproved indication [Unknown]
